FAERS Safety Report 16143858 (Version 2)
Quarter: 2019Q2

REPORT INFORMATION
  Report Type: Report from Study
  Country: FR (occurrence: FR)
  Receive Date: 20190401
  Receipt Date: 20190418
  Transmission Date: 20190711
  Serious: Yes (Death, Hospitalization, Other)
  Sender: FDA-Public Use
  Company Number: FR-OTSUKA-2019_008365

PATIENT
  Age: 89 Year
  Sex: Male

DRUGS (7)
  1. DECITABINE. [Suspect]
     Active Substance: DECITABINE
     Indication: CHRONIC MYELOMONOCYTIC LEUKAEMIA
     Dosage: 40.6 MG, IN 1 CYCLICAL DAY 1- DAY 5 (CYCLE 1)
     Route: 042
     Dates: start: 20181210, end: 20181214
  2. TAHOR [Concomitant]
     Active Substance: ATORVASTATIN CALCIUM
     Indication: PRODUCT USED FOR UNKNOWN INDICATION
     Dosage: 40 MG, IN 1 DAY
     Route: 048
  3. FUROSEMIDE ARROW [Concomitant]
     Active Substance: FUROSEMIDE
     Indication: HYPERTENSION
     Dosage: 20 MG,  IN 1 DAY
     Route: 065
     Dates: end: 20190317
  4. DECITABINE. [Suspect]
     Active Substance: DECITABINE
     Dosage: 40.6 MG,  IN 1 CYCLICAL
     Route: 042
     Dates: start: 20190304, end: 20190308
  5. LANZOR [Concomitant]
     Active Substance: LANSOPRAZOLE
     Indication: GASTROINTESTINAL DISORDER THERAPY
     Dosage: 15 MG, IN 1 DAY
     Route: 048
  6. RAMIPRIL ALMUS [Concomitant]
     Active Substance: RAMIPRIL
     Indication: ACUTE CORONARY SYNDROME
     Dosage: 1.5 MG, 1 IN 1 DAY
     Route: 048
     Dates: end: 20190317
  7. TEMERIT [Concomitant]
     Active Substance: NEBIVOLOL
     Indication: ACUTE CORONARY SYNDROME
     Dosage: 5 MG, 1 IN 1 DAY
     Route: 048
     Dates: end: 20190317

REACTIONS (2)
  - Neuropathy peripheral [Not Recovered/Not Resolved]
  - Subdural haematoma [Fatal]

NARRATIVE: CASE EVENT DATE: 20190308
